FAERS Safety Report 6641021-8 (Version None)
Quarter: 2010Q1

REPORT INFORMATION
  Report Type: 
  Country: None (occurrence: None)
  Receive Date: 20100318
  Receipt Date: 20100317
  Transmission Date: 20100710
  Serious: Yes (Other)
  Sender: FDA-Public Use
  Company Number: B0640332A

PATIENT
  Sex: Female

DRUGS (5)
  1. FONDAPARINUX SODIUM [Suspect]
     Indication: PROPHYLAXIS
     Dosage: 1.5MG PER DAY
     Route: 058
     Dates: start: 20100217, end: 20100302
  2. INDOBUFENE [Suspect]
     Indication: PROPHYLAXIS
     Route: 048
  3. LANSOPRAZOLE [Suspect]
     Indication: PROPHYLAXIS
     Route: 048
  4. RAMIPRIL [Suspect]
     Indication: HYPERTENSIVE HEART DISEASE
     Route: 048
  5. FRUSEMIDE [Suspect]
     Indication: HYPERTENSIVE HEART DISEASE
     Route: 048

REACTIONS (5)
  - AORTIC DILATATION [None]
  - CARDIOMEGALY [None]
  - HYPOTENSION [None]
  - PULMONARY EMBOLISM [None]
  - SOMNOLENCE [None]
